FAERS Safety Report 24566667 (Version 1)
Quarter: 2024Q4

REPORT INFORMATION
  Report Type: Report from Study
  Country: US (occurrence: US)
  Receive Date: 20241030
  Receipt Date: 20241030
  Transmission Date: 20250114
  Serious: Yes (Hospitalization)
  Sender: ABBVIE
  Company Number: US-ABBVIE-5978333

PATIENT
  Sex: Female

DRUGS (4)
  1. VENCLEXTA [Suspect]
     Active Substance: VENETOCLAX
     Indication: Acute myeloid leukaemia
     Dosage: LAST ADMIN DATE: 2024
     Route: 048
     Dates: start: 202407
  2. VENCLEXTA [Suspect]
     Active Substance: VENETOCLAX
     Indication: Acute myeloid leukaemia
     Dosage: FIRST ADMIN DATE: 2024
     Route: 048
  3. XOSPATA [Concomitant]
     Active Substance: GILTERITINIB
     Indication: Acute myeloid leukaemia
  4. XOSPATA [Concomitant]
     Active Substance: GILTERITINIB
     Indication: Acute myeloid leukaemia
     Dates: start: 2024

REACTIONS (2)
  - Full blood count decreased [Unknown]
  - Expired product administered [Unknown]

NARRATIVE: CASE EVENT DATE: 20240101
